FAERS Safety Report 5739055-0 (Version None)
Quarter: 2008Q2

REPORT INFORMATION
  Report Type: 
  Country: None (occurrence: None)
  Receive Date: 20080515
  Receipt Date: 20080515
  Transmission Date: 20081010
  Serious: Yes (Life-Threatening, Hospitalization)
  Sender: FDA-Public Use
  Company Number: None

PATIENT
  Age: 91 Year
  Sex: Male
  Weight: 77.56 kg

DRUGS (2)
  1. HEPARIN SODIUM 1,000 UNITS IN DEXTROSE 5% [Suspect]
     Indication: ACUTE MYOCARDIAL INFARCTION
     Dosage: 900 UNITS  PER HOUR  IV
     Route: 042
     Dates: start: 20080324, end: 20080324
  2. EPTIFIBATIDE [Suspect]
     Indication: ACUTE MYOCARDIAL INFARCTION
     Dosage: 2/KG MCG  OTHER  IV
     Route: 042
     Dates: start: 20080324, end: 20080324

REACTIONS (1)
  - GASTROINTESTINAL HAEMORRHAGE [None]
